FAERS Safety Report 4314331-7 (Version None)
Quarter: 2004Q1

REPORT INFORMATION
  Report Type: 
  Country: None (occurrence: None)
  Receive Date: 20040308
  Receipt Date: 20040223
  Transmission Date: 20041129
  Serious: Yes (Hospitalization)
  Sender: FDA-Public Use
  Company Number: US-JNJFOC-20031201298

PATIENT
  Age: 84 Year
  Sex: Female
  Weight: 93.8946 kg

DRUGS (9)
  1. DURAGESIC [Suspect]
     Indication: PAIN
     Dosage: SEE IMAGE
     Route: 062
     Dates: start: 20030101, end: 20030910
  2. DURAGESIC [Suspect]
     Indication: PAIN
     Dosage: SEE IMAGE
     Route: 062
     Dates: start: 20030910, end: 20030914
  3. DILAUDID [Suspect]
     Indication: PAIN
  4. UNSPECIFIED NARCOTICS (ALL OTHER THERAPEUTIC PRODUCTS) [Suspect]
     Indication: PAIN
  5. NEXIUM [Concomitant]
  6. BENICAR [Concomitant]
  7. FEOSOL (FERROUS SULFATE) [Concomitant]
  8. LASIX [Concomitant]
  9. CATAPRES-TTS-1 [Concomitant]

REACTIONS (17)
  - AMNESIA [None]
  - ASTHENIA [None]
  - ATRIAL FIBRILLATION [None]
  - AZOTAEMIA [None]
  - BACK PAIN [None]
  - BLOOD CREATININE INCREASED [None]
  - BLOOD UREA INCREASED [None]
  - CONDITION AGGRAVATED [None]
  - CONFUSIONAL STATE [None]
  - DEHYDRATION [None]
  - DELIRIUM [None]
  - ENCEPHALOPATHY [None]
  - HALLUCINATION [None]
  - HEART RATE INCREASED [None]
  - LIPASE INCREASED [None]
  - NAUSEA [None]
  - VOMITING [None]
